FAERS Safety Report 18917495 (Version 1)
Quarter: 2021Q1

REPORT INFORMATION
  Report Type: Spontaneous
  Country: US (occurrence: US)
  Receive Date: 20210219
  Receipt Date: 20210219
  Transmission Date: 20210420
  Serious: No
  Sender: FDA-Public Use
  Company Number: US-PERRIGO-20US017494

PATIENT
  Sex: Female

DRUGS (2)
  1. LOPERAMIDE HYDROCHLORIDE. [Suspect]
     Active Substance: LOPERAMIDE HYDROCHLORIDE
     Indication: PRODUCT USED FOR UNKNOWN INDICATION
     Dosage: 6 TO 8 MG, NIGHTLY
     Route: 048
     Dates: start: 2014, end: 202012
  2. LOPERAMIDE HYDROCHLORIDE. [Suspect]
     Active Substance: LOPERAMIDE HYDROCHLORIDE
     Dosage: 6 TO 8 MG, NIGHTLY
     Route: 048
     Dates: start: 202012

REACTIONS (4)
  - Therapeutic product effect decreased [Unknown]
  - Intentional product use issue [Unknown]
  - Product administration error [Unknown]
  - Incorrect product administration duration [Unknown]

NARRATIVE: CASE EVENT DATE: 2014
